FAERS Safety Report 4742107-5 (Version None)
Quarter: 2005Q3

REPORT INFORMATION
  Report Type: 
  Country: None (occurrence: None)
  Receive Date: 20050808
  Receipt Date: 20050720
  Transmission Date: 20060218
  Serious: Yes (Hospitalization)
  Sender: FDA-Public Use
  Company Number: 245705

PATIENT
  Age: 53 Year
  Sex: Male
  Weight: 92 kg

DRUGS (8)
  1. INSULIN ASPART [Suspect]
     Dosage: 48 U, QD, SUBCUTANEOUS
     Route: 058
     Dates: start: 20050526
  2. METFORMIN HCL [Suspect]
     Indication: INSULIN-REQUIRING TYPE II DIABETES MELLITUS
     Dosage: 2550 MG, QD, ORAL
     Route: 048
     Dates: start: 20050526
  3. TENORMIN [Concomitant]
  4. RAMIPRIL [Concomitant]
  5. CRESTOR [Concomitant]
  6. KARDEGIC           (ACETYLSALICYLATE LYSINE) [Concomitant]
  7. NEURONTIN [Concomitant]
  8. CARTEOL             (CARTEOLOL HYDROCHLORIDE, BENZALKONIUM CHLORIDE) [Concomitant]

REACTIONS (1)
  - BRUGADA SYNDROME [None]
